FAERS Safety Report 5815909-1 (Version None)
Quarter: 2008Q3

REPORT INFORMATION
  Report Type: 
  Country: None (occurrence: None)
  Receive Date: 20080716
  Receipt Date: 20080716
  Transmission Date: 20090109
  Serious: Yes (Life-Threatening, Hospitalization)
  Sender: FDA-Public Use
  Company Number: None

PATIENT
  Age: 45 Year
  Sex: Female
  Weight: 136.0791 kg

DRUGS (1)
  1. DIFLUCAN [Suspect]
     Indication: FUNGAL INFECTION
     Dosage: ONE TIME-RELEASED PILL ONCE PO
     Route: 048
     Dates: start: 20080624, end: 20080715

REACTIONS (9)
  - ANXIETY [None]
  - BURNING SENSATION [None]
  - FEELING ABNORMAL [None]
  - FEELING JITTERY [None]
  - HEART RATE INCREASED [None]
  - INJURY [None]
  - NAUSEA [None]
  - TREMOR [None]
  - VOMITING [None]
